FAERS Safety Report 15011470 (Version 1)
Quarter: 2018Q2

REPORT INFORMATION
  Report Type: Spontaneous
  Country: US (occurrence: US)
  Receive Date: 20180529
  Receipt Date: 20180529
  Transmission Date: 20180711
  Serious: Yes (Other)
  Sender: FDA-Public Use
  Company Number: None

PATIENT
  Age: 75 Year
  Sex: Male

DRUGS (23)
  1. BABY ASPIRIN [Concomitant]
     Active Substance: ASPIRIN
  2. TORSEMIDE. [Concomitant]
     Active Substance: TORSEMIDE
  3. DORZOLOMIDE [Concomitant]
     Active Substance: DORZOLAMIDE
  4. TACROLIMUS. [Suspect]
     Active Substance: TACROLIMUS
     Indication: IMMUNOSUPPRESSION
     Route: 048
     Dates: start: 20180511, end: 20180515
  5. FLOMAX [Concomitant]
     Active Substance: TAMSULOSIN HYDROCHLORIDE
  6. LATANOPROST. [Concomitant]
     Active Substance: LATANOPROST
  7. CO-ENZYME Q-10 [Concomitant]
  8. MYFORTIC [Concomitant]
     Active Substance: MYCOPHENOLATE SODIUM
  9. TRAMADOL. [Concomitant]
     Active Substance: TRAMADOL
  10. ULORIC [Concomitant]
     Active Substance: FEBUXOSTAT
  11. MAGNESIUM 64 [Concomitant]
  12. TYLENOL PM [Concomitant]
     Active Substance: ACETAMINOPHEN\DIPHENHYDRAMINE
  13. COLACE [Concomitant]
     Active Substance: DOCUSATE SODIUM
  14. CRESTOR [Concomitant]
     Active Substance: ROSUVASTATIN CALCIUM
  15. BRIMONODINE [Concomitant]
  16. CLARITIN [Concomitant]
     Active Substance: LORATADINE
  17. MULTIVITAMIN [Concomitant]
     Active Substance: VITAMINS
  18. CARVEDILOL. [Concomitant]
     Active Substance: CARVEDILOL
  19. LEVOTHYROXINE. [Concomitant]
     Active Substance: LEVOTHYROXINE
  20. POTASSIUM CHLORIDE. [Concomitant]
     Active Substance: POTASSIUM CHLORIDE
  21. PREDNISONE. [Concomitant]
     Active Substance: PREDNISONE
  22. UMALOG INSULIN [Concomitant]
  23. SENSIPAR [Concomitant]
     Active Substance: CINACALCET HYDROCHLORIDE

REACTIONS (2)
  - Product substitution issue [None]
  - Toxicity to various agents [None]
